FAERS Safety Report 21374544 (Version 1)
Quarter: 2022Q3

REPORT INFORMATION
  Report Type: Spontaneous
  Country: US (occurrence: US)
  Receive Date: 20220926
  Receipt Date: 20220926
  Transmission Date: 20221027
  Serious: No
  Sender: FDA-Public Use
  Company Number: US-ALLERGAN-2226040US

PATIENT
  Sex: Female

DRUGS (1)
  1. DURYSTA [Suspect]
     Active Substance: BIMATOPROST
     Indication: Glaucoma
     Dosage: 0.01 MG, SINGLE
     Route: 031
     Dates: start: 20220801, end: 20220801

REACTIONS (2)
  - Ocular hyperaemia [Recovered/Resolved]
  - Eye pain [Recovered/Resolved]
